FAERS Safety Report 5805005-1 (Version None)
Quarter: 2008Q3

REPORT INFORMATION
  Report Type: 
  Country: None (occurrence: None)
  Receive Date: 20080709
  Receipt Date: 20080707
  Transmission Date: 20090109
  Serious: Yes (Life-Threatening, Other)
  Sender: FDA-Public Use
  Company Number: US-BOEHRINGER INGELHEIM GMBH, GERMANY-2008-BP-03968BP

PATIENT
  Age: 40 Year
  Sex: Male

DRUGS (5)
  1. APTIVUS/RITONAVIR CAPSULES [Suspect]
     Indication: HIV INFECTION
     Route: 048
     Dates: start: 20051121, end: 20061208
  2. RITONAVIR [Concomitant]
     Dates: start: 20050421
  3. TRUVADA [Concomitant]
     Dates: start: 20051121
  4. FUZEON [Concomitant]
     Dates: start: 20051121, end: 20080229
  5. DEPSOAL [Concomitant]
     Dates: start: 19930101, end: 20071001

REACTIONS (2)
  - ANEURYSM [None]
  - EMBOLISM [None]
